FAERS Safety Report 6256238-4 (Version None)
Quarter: 2009Q3

REPORT INFORMATION
  Report Type: 
  Country: None (occurrence: None)
  Receive Date: 20090706
  Receipt Date: 20090318
  Transmission Date: 20100115
  Serious: No
  Sender: FDA-Public Use
  Company Number: A0774005A

PATIENT
  Age: 72 Year
  Sex: Male

DRUGS (5)
  1. ADVAIR HFA [Suspect]
     Dosage: 1PUFF TWICE PER DAY
     Route: 055
     Dates: start: 20081001
  2. SPIRIVA [Concomitant]
  3. COREG [Concomitant]
  4. DIOVAN [Concomitant]
  5. ALLOPURINOL [Concomitant]

REACTIONS (1)
  - BLOOD GLUCOSE INCREASED [None]
